FAERS Safety Report 9417315 (Version 1)
Quarter: 2013Q3

REPORT INFORMATION
  Report Type: Spontaneous
  Country: US (occurrence: US)
  Receive Date: 20130724
  Receipt Date: 20130724
  Transmission Date: 20140515
  Serious: No
  Sender: FDA-Public Use
  Company Number: US-BRISTOL-MYERS SQUIBB COMPANY-18906032

PATIENT
  Age: 78 Year
  Sex: Female
  Weight: 74.83 kg

DRUGS (1)
  1. ELIQUIS [Suspect]
     Dosage: LAST DOSE 09APR2013
     Dates: start: 20130407

REACTIONS (2)
  - Epistaxis [Recovering/Resolving]
  - Rectal haemorrhage [Recovering/Resolving]
